FAERS Safety Report 9606406 (Version 2)
Quarter: 2013Q4

REPORT INFORMATION
  Report Type: Spontaneous
  Country: US (occurrence: US)
  Receive Date: 20131008
  Receipt Date: 20131008
  Transmission Date: 20140711
  Serious: No
  Sender: FDA-Public Use
  Company Number: US-AMGEN-USASP2013047956

PATIENT
  Age: 68 Year
  Sex: Female

DRUGS (1)
  1. PROLIA [Suspect]
     Indication: OSTEOPOROSIS POSTMENOPAUSAL
     Dosage: UNK

REACTIONS (10)
  - Influenza like illness [Recovering/Resolving]
  - Abdominal discomfort [Recovering/Resolving]
  - Rash pruritic [Not Recovered/Not Resolved]
  - Paraesthesia [Unknown]
  - Cystitis [Recovering/Resolving]
  - Rash papular [Not Recovered/Not Resolved]
  - Rash erythematous [Not Recovered/Not Resolved]
  - Bone pain [Unknown]
  - Measles [Not Recovered/Not Resolved]
  - Rash [Recovering/Resolving]
